FAERS Safety Report 5401278-8 (Version None)
Quarter: 2007Q3

REPORT INFORMATION
  Report Type: 
  Country: None (occurrence: None)
  Receive Date: 20070726
  Receipt Date: 20070719
  Transmission Date: 20080115
  Serious: Yes (Hospitalization)
  Sender: FDA-Public Use
  Company Number: 2007BI010163

PATIENT
  Age: 43 Year
  Sex: Male

DRUGS (2)
  1. AVONEX [Suspect]
     Indication: MULTIPLE SCLEROSIS
     Dosage: 30 UG; QW; IM
     Route: 030
     Dates: start: 20050621, end: 20060301
  2. AVONEX [Suspect]
     Indication: MULTIPLE SCLEROSIS
     Dosage: 30 UG; QW
     Dates: start: 20070712

REACTIONS (7)
  - ANXIETY [None]
  - DEEP VEIN THROMBOSIS [None]
  - INTERVERTEBRAL DISC OPERATION [None]
  - LOSS OF EMPLOYMENT [None]
  - NEUROFIBROMA [None]
  - POST PROCEDURAL COMPLICATION [None]
  - SWELLING [None]
